FAERS Safety Report 4841129-3 (Version None)
Quarter: 2005Q4

REPORT INFORMATION
  Report Type: 
  Country: None (occurrence: None)
  Receive Date: 20051130
  Receipt Date: 20051005
  Transmission Date: 20060501
  Serious: No
  Sender: FDA-Public Use
  Company Number: US-BRISTOL-MYERS SQUIBB COMPANY-13138292

PATIENT
  Age: 16 Year
  Sex: Male
  Weight: 109 kg

DRUGS (5)
  1. ABILIFY [Suspect]
     Indication: ASPERGER'S DISORDER
     Route: 048
  2. ABILIFY [Suspect]
     Indication: AUTISM
     Route: 048
  3. ABILIFY [Suspect]
     Indication: BIPOLAR DISORDER
     Route: 048
  4. DEPAKOTE [Concomitant]
  5. LITHIUM [Concomitant]

REACTIONS (1)
  - TREMOR [None]
